FAERS Safety Report 11596410 (Version 1)
Quarter: 2015Q4

REPORT INFORMATION
  Report Type: Spontaneous
  Country: US (occurrence: None)
  Receive Date: 20151005
  Receipt Date: 20151005
  Transmission Date: 20160304
  Serious: Yes (Hospitalization)
  Sender: FDA-Public Use
  Company Number: None

PATIENT
  Age: 71 Year
  Sex: Female

DRUGS (1)
  1. AVONEX [Suspect]
     Active Substance: INTERFERON BETA-1A
     Indication: MULTIPLE SCLEROSIS
     Route: 028
     Dates: start: 20150813, end: 20150914

REACTIONS (3)
  - Pain in extremity [None]
  - Peripheral swelling [None]
  - Rash [None]

NARRATIVE: CASE EVENT DATE: 20150914
